FAERS Safety Report 5399355-3 (Version None)
Quarter: 2007Q3

REPORT INFORMATION
  Report Type: 
  Country: None (occurrence: None)
  Receive Date: 20070727
  Receipt Date: 20070719
  Transmission Date: 20080115
  Serious: Yes (Other)
  Sender: FDA-Public Use
  Company Number: SG-ROCHE-507816

PATIENT
  Age: 33 Year
  Sex: Male

DRUGS (1)
  1. SYNFLEX [Suspect]
     Route: 048
     Dates: start: 20070702, end: 20070702

REACTIONS (2)
  - EYE SWELLING [None]
  - INCREASED UPPER AIRWAY SECRETION [None]
